FAERS Safety Report 9815523 (Version 3)
Quarter: 2014Q1

REPORT INFORMATION
  Report Type: Report from Study
  Country: KR (occurrence: KR)
  Receive Date: 20140114
  Receipt Date: 20140317
  Transmission Date: 20141002
  Serious: Yes (Hospitalization)
  Sender: FDA-Public Use
  Company Number: KR-SA-2014SA002614

PATIENT
  Age: 56 Year
  Sex: Male
  Weight: 60 kg

DRUGS (12)
  1. LANTUS [Suspect]
     Indication: DIABETES MELLITUS
     Dosage: DOSE:10 UNIT(S)
     Route: 058
     Dates: start: 20131127, end: 20140302
  2. HUMALOG [Suspect]
     Indication: DIABETES MELLITUS
     Route: 058
  3. DIAMICRON MR [Concomitant]
     Indication: DIABETES MELLITUS
     Route: 048
     Dates: start: 201309
  4. GLUPA [Concomitant]
     Indication: DIABETES MELLITUS
     Route: 048
     Dates: start: 201309
  5. HEPARIN [Concomitant]
  6. ALDACTONE [Concomitant]
  7. DICHLOZID [Concomitant]
  8. PERINDOPRIL [Concomitant]
  9. BETALOC [Concomitant]
  10. TRIMETAZIDINE [Concomitant]
  11. MOLSIDOMINE [Concomitant]
  12. XANAX [Concomitant]

REACTIONS (2)
  - Dyspnoea [Not Recovered/Not Resolved]
  - Blood glucose increased [Unknown]
